FAERS Safety Report 5334487-7 (Version None)
Quarter: 2007Q2

REPORT INFORMATION
  Report Type: 
  Country: None (occurrence: None)
  Receive Date: 20070308
  Receipt Date: 20061127
  Transmission Date: 20071010
  Serious: No
  Sender: FDA-Public Use
  Company Number: 2006-BP-13794BP

PATIENT
  Age: 70 Year
  Sex: Female

DRUGS (5)
  1. SPIRIVA [Suspect]
     Indication: CHRONIC OBSTRUCTIVE PULMONARY DISEASE
     Dosage: SEE IMAGE
     Route: 055
     Dates: start: 20060801, end: 20061122
  2. SPIRIVA [Suspect]
     Indication: CHRONIC OBSTRUCTIVE PULMONARY DISEASE
     Dosage: SEE IMAGE
     Route: 055
     Dates: start: 20061001, end: 20061122
  3. NEXIUM [Concomitant]
  4. ZOCOR [Concomitant]
  5. MULTI-VITAMINS [Concomitant]

REACTIONS (5)
  - BRONCHITIS [None]
  - DRY MOUTH [None]
  - ORAL MUCOSAL DISCOLOURATION [None]
  - TONGUE DISCOLOURATION [None]
  - URINE FLOW DECREASED [None]
